FAERS Safety Report 5946778-7 (Version None)
Quarter: 2008Q4

REPORT INFORMATION
  Report Type: 
  Country: None (occurrence: None)
  Receive Date: 20081110
  Receipt Date: 20081103
  Transmission Date: 20090506
  Serious: Yes (Life-Threatening)
  Sender: FDA-Public Use
  Company Number: US-MERCK-0811USA00490

PATIENT
  Sex: Female

DRUGS (3)
  1. JANUVIA [Suspect]
     Indication: TYPE 2 DIABETES MELLITUS
     Route: 048
  2. CRESTOR [Concomitant]
     Route: 065
  3. LOVAZA [Concomitant]
     Route: 065

REACTIONS (2)
  - LIPIDS ABNORMAL [None]
  - LOW DENSITY LIPOPROTEIN INCREASED [None]
